FAERS Safety Report 5737880-3 (Version None)
Quarter: 2008Q2

REPORT INFORMATION
  Report Type: 
  Country: None (occurrence: None)
  Receive Date: 20080509
  Receipt Date: 20080429
  Transmission Date: 20081010
  Serious: Yes (Disabling, Other)
  Sender: FDA-Public Use
  Company Number: 19241

PATIENT
  Age: 25 Year
  Sex: Female

DRUGS (7)
  1. CYTOSINE ARABINOSIDE. MFR: NOT SPECIFIED [Suspect]
     Indication: PROPHYLACTIC CHEMOTHERAPY
     Dosage: 40 MG ONCE IT
     Route: 037
  2. METHOTREXATE [Suspect]
     Indication: PROPHYLACTIC CHEMOTHERAPY
     Dosage: 12 MG ONCE IT
     Route: 037
  3. HYDROCORTISONE [Concomitant]
  4. CONSOLIDATION CHEMOTHERAPY [Concomitant]
  5. METHOTREXATE [Concomitant]
  6. MERCAPTOPURINE [Concomitant]
  7. PREDNISOLONE [Concomitant]

REACTIONS (3)
  - AREFLEXIA [None]
  - PARAPLEGIA [None]
  - URINARY RETENTION [None]
